FAERS Safety Report 6413813-1 (Version None)
Quarter: 2009Q4

REPORT INFORMATION
  Report Type: 
  Country: None (occurrence: None)
  Receive Date: 20091026
  Receipt Date: 20091016
  Transmission Date: 20100525
  Serious: Yes (Life-Threatening, Hospitalization)
  Sender: FDA-Public Use
  Company Number: B0599528A

PATIENT
  Sex: Female

DRUGS (2)
  1. ALLI [Suspect]
     Dosage: 60MG THREE TIMES PER DAY
     Route: 065
     Dates: start: 20090601, end: 20090620
  2. UNKNOWN DRUG [Concomitant]
     Indication: HYPERTENSION
     Route: 065
     Dates: end: 20030101

REACTIONS (2)
  - CARDIAC FAILURE [None]
  - WEIGHT INCREASED [None]
